FAERS Safety Report 7927262-8 (Version None)
Quarter: 2011Q4

REPORT INFORMATION
  Report Type: 
  Country: None (occurrence: None)
  Receive Date: 20111118
  Receipt Date: 20111114
  Transmission Date: 20120403
  Serious: Yes (Death, Life-Threatening, Hospitalization)
  Sender: FDA-Public Use
  Company Number: US-PFIZER INC-0015148401PHAMED

PATIENT
  Sex: Male
  Weight: 29.6 kg

DRUGS (21)
  1. GENOTROPIN [Suspect]
     Indication: MALNUTRITION
  2. LOPERAMIDE HYDROCHLORIDE [Concomitant]
  3. RIFAMPIN [Concomitant]
  4. SODIUM CHLORIDE [Concomitant]
  5. FOLIC ACID [Concomitant]
  6. MUPIROCIN [Concomitant]
  7. GENOTROPIN [Suspect]
     Indication: OFF LABEL USE
     Dosage: 1.5 MG, 1X/DAY
     Route: 058
     Dates: start: 19990120
  8. VICON FORTE [Concomitant]
  9. MICONAZOLE NITRATE [Concomitant]
  10. NYSTATIN [Concomitant]
  11. TERBUTALINE SULFATE [Concomitant]
  12. CALCIUM [Concomitant]
  13. CEPHALEXIN [Concomitant]
  14. CLARITHROMYCIN [Concomitant]
  15. ETHAMBUTOL [Concomitant]
  16. FERROUS SULFATE [Concomitant]
  17. ACETAMINOPHEN [Concomitant]
  18. DIPHENHYDRAMINE [Concomitant]
  19. RANITIDINE [Concomitant]
  20. OCEAN NASAL SPRAY [Concomitant]
  21. GENOTROPIN [Suspect]
     Indication: MUSCLE ATROPHY

REACTIONS (2)
  - SEPSIS [None]
  - MULTI-ORGAN FAILURE [None]
